FAERS Safety Report 9524578 (Version 2)
Quarter: 2013Q3

REPORT INFORMATION
  Report Type: Spontaneous
  Country: GB (occurrence: GB)
  Receive Date: 20130916
  Receipt Date: 20130916
  Transmission Date: 20140515
  Serious: Yes (Life-Threatening, Hospitalization, Other)
  Sender: FDA-Public Use
  Company Number: PHFR2013GB004609

PATIENT
  Age: 59 Year
  Sex: Male

DRUGS (3)
  1. CLOZARIL [Suspect]
     Indication: SCHIZOPHRENIA
     Dosage: UNK
     Route: 048
     Dates: start: 20030702
  2. CLOZARIL [Suspect]
     Dosage: 275 MG, DAILY
     Route: 048
  3. LITHIUM [Suspect]
     Dosage: 1000 MG, DAILY
     Route: 048

REACTIONS (5)
  - Urinary tract infection [Unknown]
  - Neutrophil count increased [Unknown]
  - White blood cell count increased [Unknown]
  - Toxicity to various agents [Unknown]
  - Diarrhoea [Unknown]
